FAERS Safety Report 5917052-X (Version None)
Quarter: 2008Q4

REPORT INFORMATION
  Report Type: 
  Country: None (occurrence: None)
  Receive Date: 20081014
  Receipt Date: 20081002
  Transmission Date: 20090506
  Serious: Yes (Other)
  Sender: FDA-Public Use
  Company Number: US-JNJFOC-20081001308

PATIENT
  Sex: Male
  Weight: 86.18 kg

DRUGS (5)
  1. DURAGESIC-100 [Suspect]
     Route: 062
  2. DURAGESIC-100 [Suspect]
     Route: 062
  3. DURAGESIC-100 [Suspect]
     Indication: BACK PAIN
     Route: 062
  4. UNKNOWN MEDICATION [Suspect]
     Indication: HEPATITIS C
     Route: 065
  5. DIAZEPAM [Concomitant]
     Indication: MUSCLE SPASMS
     Route: 048

REACTIONS (6)
  - DEPRESSION [None]
  - FEELING ABNORMAL [None]
  - HEPATITIS C [None]
  - INADEQUATE ANALGESIA [None]
  - LIVER FUNCTION TEST ABNORMAL [None]
  - PRODUCT QUALITY ISSUE [None]
